FAERS Safety Report 12683486 (Version 1)
Quarter: 2016Q3

REPORT INFORMATION
  Report Type: Spontaneous
  Country: US (occurrence: None)
  Receive Date: 20160824
  Receipt Date: 20160824
  Transmission Date: 20161109
  Serious: Yes (Other)
  Sender: FDA-Public Use
  Company Number: None

PATIENT
  Age: 62 Year
  Sex: Female

DRUGS (7)
  1. VITAMIN A + D [Concomitant]
  2. TYKERB [Suspect]
     Active Substance: LAPATINIB DITOSYLATE
     Indication: BREAST CANCER
     Route: 048
     Dates: start: 201401
  3. AROMASIN [Concomitant]
     Active Substance: EXEMESTANE
  4. CAPECITABINE 500 MG [Suspect]
     Active Substance: CAPECITABINE
     Indication: BREAST CANCER
     Dosage: 1500MG (3 TABS) BID FOR 1 WK THEN 1 WK OFF ORAL
     Route: 048
     Dates: start: 201503
  5. ZETIA [Concomitant]
     Active Substance: EZETIMIBE
  6. BABY ASPIRIN [Concomitant]
     Active Substance: ASPIRIN
  7. ST JOSEPH AS [Concomitant]

REACTIONS (1)
  - Thrombosis [None]

NARRATIVE: CASE EVENT DATE: 201608
